FAERS Safety Report 9188818 (Version 2)
Quarter: 2013Q2

REPORT INFORMATION
  Report Type: Report from Study
  Country: US (occurrence: US)
  Receive Date: 20130326
  Receipt Date: 20130418
  Transmission Date: 20140414
  Serious: Yes (Hospitalization)
  Sender: FDA-Public Use
  Company Number: US-ABBOTT-13P-163-1064441-00

PATIENT
  Age: 72 Year
  Sex: Female
  Weight: 77.18 kg

DRUGS (17)
  1. HUMIRA [Suspect]
     Indication: ANKYLOSING SPONDYLITIS
     Dates: start: 20110415
  2. HUMIRA [Suspect]
     Indication: COLITIS ULCERATIVE
  3. CIPRO [Suspect]
     Indication: URINARY TRACT INFECTION
     Dates: start: 201302, end: 201302
  4. COMBIVENT [Suspect]
     Indication: ASTHMA
     Dosage: 18/103 MCG/ACTUATION AEROSOL INHALER 2 PUFFS 4XDAILY PRN
     Dates: start: 20121016
  5. COMBIVENT [Suspect]
     Indication: DYSPNOEA
  6. POTASSIUM [Concomitant]
     Indication: MINERAL SUPPLEMENTATION
  7. PREDNISONE [Concomitant]
     Indication: PRODUCT USED FOR UNKNOWN INDICATION
     Route: 048
     Dates: start: 20130409
  8. FUROSEMIDE [Concomitant]
     Indication: PRODUCT USED FOR UNKNOWN INDICATION
     Dates: start: 20130307
  9. LANCETS [Concomitant]
     Indication: PRODUCT USED FOR UNKNOWN INDICATION
     Dosage: AS DIRECTED
     Dates: start: 20130131
  10. TRUETEST TEST STRIPS [Concomitant]
     Indication: PRODUCT USED FOR UNKNOWN INDICATION
     Dosage: AS DIRECTED
     Dates: start: 20130131
  11. FLUCONAZOLE [Concomitant]
     Indication: PRODUCT USED FOR UNKNOWN INDICATION
     Route: 048
     Dates: start: 20130131
  12. NITROGLYCERIN [Concomitant]
     Indication: PRODUCT USED FOR UNKNOWN INDICATION
     Dosage: USE AS DIRECTED
     Route: 060
     Dates: start: 20121227
  13. OMEPRAZOLE [Concomitant]
     Indication: PRODUCT USED FOR UNKNOWN INDICATION
     Route: 048
     Dates: start: 20120730
  14. TRIAMCINOLONE ACETONIDE [Concomitant]
     Indication: PRODUCT USED FOR UNKNOWN INDICATION
     Dosage: AS DIRECTED
     Dates: start: 20110926
  15. DIOVAN HCT [Concomitant]
     Indication: PRODUCT USED FOR UNKNOWN INDICATION
     Dosage: 320/5 MG ONCE DAILY
     Route: 048
     Dates: start: 20110528
  16. ADVAIR [Concomitant]
     Indication: PRODUCT USED FOR UNKNOWN INDICATION
     Dosage: DISKUS 500/50 MCG DOSE TWICE DAILY
     Route: 055
     Dates: start: 20110214
  17. ALBUTEROL SULFATE [Concomitant]
     Indication: PRODUCT USED FOR UNKNOWN INDICATION
     Dosage: USE AS DIRECTED
     Dates: start: 20110214

REACTIONS (6)
  - Dysuria [Recovered/Resolved]
  - Local swelling [Recovered/Resolved]
  - Urinary tract infection [Recovered/Resolved]
  - Dyspnoea [Recovered/Resolved]
  - Dermatitis diaper [Not Recovered/Not Resolved]
  - Arthralgia [Not Recovered/Not Resolved]
